FAERS Safety Report 5993471-0 (Version None)
Quarter: 2008Q4

REPORT INFORMATION
  Report Type: 
  Country: None (occurrence: None)
  Receive Date: 20081212
  Receipt Date: 20081205
  Transmission Date: 20090506
  Serious: Yes (Other)
  Sender: FDA-Public Use
  Company Number: SE-JNJFOC-20081201718

PATIENT
  Age: 75 Year
  Sex: Female

DRUGS (4)
  1. REMINYL [Suspect]
     Indication: DEMENTIA ALZHEIMER'S TYPE
  2. CITALOPRAM HYDROBROMIDE [Concomitant]
  3. ENALAPRIL MALEATE [Concomitant]
     Indication: HYPERTENSION
  4. NITROGLYCERIN [Concomitant]
     Indication: VASOSPASM

REACTIONS (1)
  - OEDEMA MOUTH [None]
